FAERS Safety Report 7177327-6 (Version None)
Quarter: 2010Q4

REPORT INFORMATION
  Report Type: 
  Country: None (occurrence: None)
  Receive Date: 20101216
  Receipt Date: 20101216
  Transmission Date: 20110411
  Serious: Yes (Other)
  Sender: FDA-Public Use
  Company Number: None

PATIENT
  Sex: Female
  Weight: 90.7194 kg

DRUGS (6)
  1. PROPOXYPH-ACETAMINOPHN 100-650 [Suspect]
     Indication: PROCEDURAL PAIN
     Dosage: 100-650 TOOK 3 TABLETS 1 EACH NIGHT 1 TAB FOR 3 NIGHTS
     Dates: start: 20101028, end: 20101030
  2. OMNEPRAZOLE [Concomitant]
  3. METOPROLOL TARTRATE [Concomitant]
  4. ZOCOR [Concomitant]
  5. AMITRIPTYLINE HCL [Concomitant]
  6. CLONAZEPAM [Concomitant]

REACTIONS (2)
  - PALPITATIONS [None]
  - PRODUCT QUALITY ISSUE [None]
